FAERS Safety Report 7676132-1 (Version None)
Quarter: 2011Q3

REPORT INFORMATION
  Report Type: 
  Country: None (occurrence: None)
  Receive Date: 20110805
  Receipt Date: 20110721
  Transmission Date: 20111222
  Serious: Yes (Hospitalization, Other)
  Sender: FDA-Public Use
  Company Number: 2011MA009253

PATIENT
  Age: 33 Year
  Sex: Male
  Weight: 130 kg

DRUGS (2)
  1. FEVERALL [Suspect]
     Indication: BACK PAIN
     Dosage: 7.5 G;QD
  2. ACETYLCYSTEINE [Suspect]
     Indication: DRUG THERAPY
     Dosage: 36 G;TIW

REACTIONS (4)
  - OVERDOSE [None]
  - ACIDOSIS [None]
  - RENAL IMPAIRMENT [None]
  - SELF-MEDICATION [None]
